FAERS Safety Report 6738045-9 (Version None)
Quarter: 2010Q2

REPORT INFORMATION
  Report Type: 
  Country: None (occurrence: None)
  Receive Date: 20100519
  Receipt Date: 20100507
  Transmission Date: 20101027
  Serious: Yes (Other)
  Sender: FDA-Public Use
  Company Number: 011437

PATIENT
  Sex: Male

DRUGS (3)
  1. KEPPRA [Suspect]
     Indication: EPILEPSY
     Dosage: A FEW WEEKS
  2. LEXAPRO [Suspect]
     Indication: DEPRESSION
     Dosage: 5 MG, 10MG TABLET TIMES PER 5MG
     Dates: start: 20100319
  3. CYRESS [Concomitant]

REACTIONS (1)
  - HOMICIDE [None]
